FAERS Safety Report 7932399-3 (Version None)
Quarter: 2011Q4

REPORT INFORMATION
  Report Type: 
  Country: None (occurrence: None)
  Receive Date: 20111122
  Receipt Date: 20111115
  Transmission Date: 20120403
  Serious: Yes (Hospitalization)
  Sender: FDA-Public Use
  Company Number: US-BIOGENIDEC-2011BI037382

PATIENT
  Age: 40 Year
  Sex: Male

DRUGS (8)
  1. TYSABRI [Suspect]
     Indication: MULTIPLE SCLEROSIS
     Route: 042
     Dates: start: 20110722, end: 20110823
  2. CYMBALTA [Concomitant]
  3. XANAX [Concomitant]
  4. LUNESTA [Concomitant]
  5. REMERON [Concomitant]
  6. NORTRIPTYLINE HCL [Concomitant]
  7. AMPYRA [Concomitant]
  8. METHADONE HCL [Concomitant]

REACTIONS (4)
  - PSYCHOTIC DISORDER [None]
  - RENAL FAILURE ACUTE [None]
  - ASTHENIA [None]
  - MOBILITY DECREASED [None]
